FAERS Safety Report 6854650-3 (Version None)
Quarter: 2010Q3

REPORT INFORMATION
  Report Type: 
  Country: None (occurrence: None)
  Receive Date: 20100717
  Receipt Date: 20080107
  Transmission Date: 20110219
  Serious: No
  Sender: FDA-Public Use
  Company Number: US-PFIZER INC-2008003855

PATIENT

DRUGS (1)
  1. CHANTIX [Suspect]
     Dates: start: 20070331, end: 20071101

REACTIONS (6)
  - CONSTIPATION [None]
  - DECREASED APPETITE [None]
  - DYSGEUSIA [None]
  - FATIGUE [None]
  - HEADACHE [None]
  - MOOD SWINGS [None]
